FAERS Safety Report 9317991 (Version 1)
Quarter: 2013Q2

REPORT INFORMATION
  Report Type: Spontaneous
  Country: RU (occurrence: RU)
  Receive Date: 20130530
  Receipt Date: 20130530
  Transmission Date: 20140414
  Serious: Yes (Hospitalization)
  Sender: FDA-Public Use
  Company Number: RU-PFIZER INC-2013162368

PATIENT
  Age: 42 Year
  Sex: Male

DRUGS (2)
  1. CORDARONE [Suspect]
     Indication: EXTRASYSTOLES
     Dosage: 1 DF, TWICE A DAY
     Route: 048
     Dates: start: 201012, end: 201212
  2. CORDARONE [Suspect]
     Dosage: 1 DF, TWICE A DAY
     Route: 048
     Dates: start: 201212, end: 201304

REACTIONS (4)
  - Dizziness [Recovering/Resolving]
  - Diplopia [Recovered/Resolved]
  - Blood alkaline phosphatase increased [Unknown]
  - Gamma-glutamyltransferase increased [Unknown]
